FAERS Safety Report 10133701 (Version 1)
Quarter: 2014Q2

REPORT INFORMATION
  Report Type: Spontaneous
  Country: US (occurrence: US)
  Receive Date: 20140428
  Receipt Date: 20140428
  Transmission Date: 20141212
  Serious: No
  Sender: FDA-Public Use
  Company Number: US-BAYER-2014-058683

PATIENT
  Age: 61 Year
  Sex: Female
  Weight: 53.52 kg

DRUGS (10)
  1. BAYER ADVANCED ASPIRIN EXTRA STRENGTH [Suspect]
     Indication: INFLAMMATION
     Dosage: 1 DF, UNK
     Route: 048
     Dates: start: 2013
  2. BAYER ADVANCED ASPIRIN EXTRA STRENGTH [Suspect]
     Indication: BACK PAIN
  3. ALEVE CAPLET [Suspect]
     Indication: INFLAMMATION
     Dosage: 1 DF, PRN
     Route: 048
     Dates: start: 2013, end: 2014
  4. ALEVE CAPLET [Suspect]
     Indication: BACK PAIN
  5. ALEVE CAPLET [Suspect]
     Indication: TOOTHACHE
  6. GLUCOSAMINE SULFATE W/CHONDROITIN [Concomitant]
  7. FISH OIL [Concomitant]
  8. OMEGA 3 [Concomitant]
  9. MULTIVITAMIN [Concomitant]
  10. ALOE VERA [Concomitant]

REACTIONS (3)
  - Therapeutic response changed [Not Recovered/Not Resolved]
  - Intentional product misuse [None]
  - Drug ineffective [None]
